FAERS Safety Report 25676543 (Version 1)
Quarter: 2025Q3

REPORT INFORMATION
  Report Type: Spontaneous
  Country: US (occurrence: None)
  Receive Date: 20250813
  Receipt Date: 20250813
  Transmission Date: 20251020
  Serious: Yes (Other)
  Sender: FDA-CTU
  Company Number: None

PATIENT
  Age: 57 Year
  Sex: Female

DRUGS (9)
  1. RINVOQ [Suspect]
     Active Substance: UPADACITINIB
     Dosage: FREQUENCY : DAILY;?
     Route: 048
     Dates: start: 20250124
  2. CLONIDINE TAB 0.1 MG [Concomitant]
  3. DEXAMETHASON ELX 0.5/5ML [Concomitant]
  4. DULOXETINE CAP 60MG [Concomitant]
  5. IBUPROFEN [Concomitant]
     Active Substance: IBUPROFEN
  6. METHOCARBAM TAB 750MG [Concomitant]
  7. PROGESTERONE [Concomitant]
     Active Substance: PROGESTERONE
  8. TOPIRAMATE [Concomitant]
     Active Substance: TOPIRAMATE
  9. WELLBUTRIN TAB 100MG SR [Concomitant]

REACTIONS (1)
  - Depression [None]

NARRATIVE: CASE EVENT DATE: 20250601
